FAERS Safety Report 8450659-7 (Version None)
Quarter: 2012Q2

REPORT INFORMATION
  Report Type: 
  Country: None (occurrence: None)
  Receive Date: 20120620
  Receipt Date: 20120608
  Transmission Date: 20120825
  Serious: Yes (Other)
  Sender: FDA-Public Use
  Company Number: JP-VERTEX PHARMACEUTICALS INC.-AE-2012-008782

PATIENT
  Sex: Male

DRUGS (11)
  1. PEGINTERFERON ALFA-2B [Concomitant]
     Indication: HEPATITIS C
     Route: 051
     Dates: start: 20120302, end: 20120412
  2. RIBAVIRIN [Concomitant]
     Route: 048
     Dates: start: 20120406, end: 20120412
  3. LOCHOLEST [Concomitant]
     Route: 048
     Dates: start: 20120302
  4. TELAVIC (TELAPREVIR) [Suspect]
     Indication: HEPATITIS C
     Route: 048
     Dates: start: 20120302
  5. RIBAVIRIN [Concomitant]
     Route: 048
     Dates: start: 20120413
  6. PEGINTERFERON ALFA-2B [Concomitant]
     Route: 051
     Dates: start: 20120413
  7. ONEALFA [Concomitant]
     Route: 048
     Dates: start: 20120302
  8. RIBAVIRIN [Concomitant]
     Indication: HEPATITIS C
     Route: 048
     Dates: start: 20120302, end: 20120329
  9. PEGINTERFERON ALFA-2B [Concomitant]
     Route: 051
     Dates: start: 20120413
  10. ALLOPURINOL [Concomitant]
     Dates: start: 20120406
  11. RIBAVIRIN [Concomitant]
     Route: 048
     Dates: start: 20120330, end: 20120405

REACTIONS (1)
  - RETINAL HAEMORRHAGE [None]
